FAERS Safety Report 6590721-7 (Version None)
Quarter: 2010Q1

REPORT INFORMATION
  Report Type: 
  Country: None (occurrence: None)
  Receive Date: 20100219
  Receipt Date: 20100211
  Transmission Date: 20100710
  Serious: Yes (Hospitalization)
  Sender: FDA-Public Use
  Company Number: US-JNJFOC-20100104633

PATIENT
  Age: 80 Year
  Sex: Female
  Weight: 64.41 kg

DRUGS (3)
  1. TYLENOL ARTHRITIS PAIN ER [Suspect]
     Route: 048
  2. TYLENOL ARTHRITIS PAIN ER [Suspect]
     Indication: ARTHRITIS
     Route: 048
  3. HYDROCHLOROTHIAZIDE [Concomitant]

REACTIONS (2)
  - COLITIS ISCHAEMIC [None]
  - PRODUCT QUALITY ISSUE [None]
